FAERS Safety Report 7806686-3 (Version None)
Quarter: 2011Q4

REPORT INFORMATION
  Report Type: 
  Country: None (occurrence: None)
  Receive Date: 20111011
  Receipt Date: 20111005
  Transmission Date: 20120403
  Serious: No
  Sender: FDA-Public Use
  Company Number: US-PFIZER INC-2011237934

PATIENT
  Sex: Male
  Weight: 84 kg

DRUGS (4)
  1. TAMSULOSIN [Concomitant]
     Indication: POLLAKIURIA
     Dosage: 0.4 MG, 1X/DAY
  2. ZITHROMAX [Suspect]
     Indication: TOOTH INFECTION
     Dosage: 250 MG, 1X/DAY (DAYS 2-5)
     Route: 048
     Dates: start: 20110907, end: 20110911
  3. ALLEGRA [Concomitant]
     Indication: HYPERSENSITIVITY
     Dosage: UNK
  4. ZITHROMAX [Suspect]
     Indication: SINUSITIS
     Dosage: 500 MG, 1X/DAY (DAY1 )
     Route: 048
     Dates: start: 20110906, end: 20110906

REACTIONS (4)
  - PHOTOSENSITIVITY REACTION [None]
  - PYREXIA [None]
  - FLUSHING [None]
  - FEELING HOT [None]
